FAERS Safety Report 24748410 (Version 1)
Quarter: 2024Q4

REPORT INFORMATION
  Report Type: Report from Study
  Country: US (occurrence: US)
  Receive Date: 20241218
  Receipt Date: 20241218
  Transmission Date: 20250114
  Serious: No
  Sender: ROCHE
  Company Number: US-ROCHE-10000159032

PATIENT
  Age: 41 Year
  Sex: Female

DRUGS (1)
  1. OCREVUS [Suspect]
     Active Substance: OCRELIZUMAB
     Indication: Multiple sclerosis
     Dosage: DATE OF MOST RECENT DOSE OF INFUSION 10-APR-2024?DATE OF NEXT DOSE SCHEDULED INFUSION ON 23-SEP-2024
     Route: 065
     Dates: start: 20240327

REACTIONS (3)
  - Colitis [Not Recovered/Not Resolved]
  - Dysstasia [Not Recovered/Not Resolved]
  - COVID-19 [Unknown]

NARRATIVE: CASE EVENT DATE: 20241028
